FAERS Safety Report 8979471 (Version 1)
Quarter: 2012Q4

REPORT INFORMATION
  Report Type: 
  Country: US (occurrence: US)
  Receive Date: 20121221
  Receipt Date: 20121221
  Transmission Date: 20130627
  Serious: No
  Sender: FDA-Public Use
  Company Number: US-AMGEN-USASP2012071792

PATIENT
  Age: 74 Year
  Sex: Female
  Weight: 57.6 kg

DRUGS (13)
  1. PROLIA [Suspect]
     Indication: OSTEOPOROSIS
     Dosage: 60 UNK, UNK
     Route: 058
     Dates: start: 20121025
  2. PROLIA [Suspect]
     Dosage: UNK
     Dates: start: 20111019
  3. PROLIA [Suspect]
     Dosage: UNK
     Dates: start: 20120419
  4. ADVAIR [Concomitant]
  5. CALCIUM VITAMIN D [Concomitant]
     Dosage: UNK UNK, qd
     Route: 048
  6. MULTIPLE VITAMINS [Concomitant]
     Dosage: UNK UNK, qd
     Route: 048
  7. VITAMIN D3 [Concomitant]
     Dosage: 2000 IU, qd
     Route: 048
  8. PREDNISONE [Concomitant]
     Indication: ARTHRITIS
     Dosage: 5 mg, prn
     Route: 048
  9. OMEPRAZOLE [Concomitant]
     Dosage: 20 mg, bid
     Route: 048
  10. ALBUTEROL SULFATE [Concomitant]
     Dosage: UNK UNK, prn
  11. SPIRIVA [Concomitant]
     Dosage: UNK UNK, qd
  12. MIRALAX                            /00754501/ [Concomitant]
     Dosage: UNK
     Route: 048
  13. METHOTREXATE SODIUM [Concomitant]
     Dosage: 2.5 mg, UNK
     Route: 048
     Dates: start: 20111121

REACTIONS (1)
  - Photopsia [Recovered/Resolved]
